FAERS Safety Report 21261388 (Version 1)
Quarter: 2022Q3

REPORT INFORMATION
  Report Type: Spontaneous
  Country: AE (occurrence: AE)
  Receive Date: 20220827
  Receipt Date: 20220827
  Transmission Date: 20221027
  Serious: Yes (Other)
  Sender: FDA-Public Use
  Company Number: AE-AMGEN-ARESP2022144369

PATIENT

DRUGS (1)
  1. CINACALCET HYDROCHLORIDE [Suspect]
     Active Substance: CINACALCET HYDROCHLORIDE
     Indication: Hyperparathyroidism
     Dosage: UNK
     Route: 065

REACTIONS (5)
  - Nephrocalcinosis [Unknown]
  - Hyperparathyroidism [Unknown]
  - Off label use [Unknown]
  - Treatment noncompliance [Unknown]
  - Gastrointestinal disorder [Unknown]
